FAERS Safety Report 14150479 (Version 1)
Quarter: 2017Q4

REPORT INFORMATION
  Report Type: Spontaneous
  Country: CH (occurrence: CH)
  Receive Date: 20171101
  Receipt Date: 20171101
  Transmission Date: 20180321
  Serious: No
  Sender: FDA-Public Use
  Company Number: CH-JAZZ-2017-CH-007408

PATIENT

DRUGS (2)
  1. ANTITHROMBIN III [Suspect]
     Active Substance: ANTITHROMBIN III HUMAN
     Indication: PROPHYLAXIS
  2. DEFIBROTIDE (NPB) [Suspect]
     Active Substance: DEFIBROTIDE SODIUM
     Indication: PROPHYLAXIS
     Dosage: 60 MG/KG, UNK

REACTIONS (3)
  - Contraindicated product administered [Unknown]
  - Prescribed overdose [Unknown]
  - Off label use [Unknown]
